FAERS Safety Report 4472237-7 (Version None)
Quarter: 2004Q4

REPORT INFORMATION
  Report Type: 
  Country: None (occurrence: None)
  Receive Date: 20041008
  Receipt Date: 20040929
  Transmission Date: 20050328
  Serious: Yes (Other)
  Sender: FDA-Public Use
  Company Number: 2004031258

PATIENT
  Age: 41 Year
  Sex: Female
  Weight: 58.514 kg

DRUGS (1)
  1. ZITHROMAX [Suspect]
     Indication: BRONCHITIS
     Dosage: 250 MG (250 MG, 1 IN 1 D), ORAL
     Route: 048
     Dates: start: 20040401, end: 20040401

REACTIONS (3)
  - DEAFNESS NEUROSENSORY [None]
  - SUDDEN HEARING LOSS [None]
  - TINNITUS [None]
